FAERS Safety Report 20811022 (Version 1)
Quarter: 2022Q2

REPORT INFORMATION
  Report Type: Spontaneous
  Country: US (occurrence: US)
  Receive Date: 20220510
  Receipt Date: 20220510
  Transmission Date: 20220721
  Serious: Yes (Death, Hospitalization, Other)
  Sender: FDA-Public Use
  Company Number: US-BAYER-200716731GDS

PATIENT
  Age: 31 Year
  Sex: Female

DRUGS (4)
  1. NAPROXEN [Suspect]
     Active Substance: NAPROXEN
     Indication: Osteoarthritis
     Dosage: 1000 MILLIGRAM, QD (500 MG)
     Route: 048
  2. METHOTREXATE [Suspect]
     Active Substance: METHOTREXATE
     Indication: Product used for unknown indication
     Dosage: 14 MILLIGRAM
     Route: 048
  3. TOCILIZUMAB [Suspect]
     Active Substance: TOCILIZUMAB
     Indication: Rheumatoid arthritis
     Dosage: 445 MILLIGRAM
     Route: 042
     Dates: start: 20081114
  4. PREDNISOLONE [Suspect]
     Active Substance: PREDNISOLONE
     Indication: Product used for unknown indication
     Dosage: 5 MILLIGRAM, QD
     Route: 048

REACTIONS (13)
  - Death [Fatal]
  - Haematochezia [Unknown]
  - Mycobacterial infection [Unknown]
  - Liver disorder [Unknown]
  - Anaemia [Unknown]
  - Diarrhoea haemorrhagic [Unknown]
  - Myocardial infarction [Unknown]
  - Transaminases increased [Unknown]
  - Hepatitis [Unknown]
  - Gastrointestinal ulcer [Unknown]
  - Upper gastrointestinal haemorrhage [Unknown]
  - Gastrointestinal perforation [Unknown]
  - Haematemesis [Unknown]

NARRATIVE: CASE EVENT DATE: 20101221
